FAERS Safety Report 18238318 (Version 1)
Quarter: 2020Q3

REPORT INFORMATION
  Report Type: Spontaneous
  Country: US (occurrence: US)
  Receive Date: 20200907
  Receipt Date: 20200907
  Transmission Date: 20201103
  Serious: No
  Sender: FDA-Public Use
  Company Number: US-PFIZER INC-2019-06291

PATIENT
  Age: 72 Year
  Sex: Female

DRUGS (3)
  1. MEKTOVI [Suspect]
     Active Substance: BINIMETINIB
     Indication: APPENDIX CANCER
     Dosage: 45 MG, 2X/DAY
     Route: 048
     Dates: start: 20190806
  2. BRAFTOVI [Suspect]
     Active Substance: ENCORAFENIB
     Indication: APPENDIX CANCER
     Dosage: 450 MG, 1X/DAY
     Route: 048
     Dates: start: 20190806
  3. BRAFTOVI [Suspect]
     Active Substance: ENCORAFENIB
     Dosage: 75 MG

REACTIONS (4)
  - Product use in unapproved indication [Unknown]
  - Diarrhoea [Recovering/Resolving]
  - Nausea [Recovering/Resolving]
  - Off label use [Unknown]
